FAERS Safety Report 10769751 (Version 1)
Quarter: 2015Q1

REPORT INFORMATION
  Report Type: Spontaneous
  Country: FR (occurrence: FR)
  Receive Date: 20150206
  Receipt Date: 20150206
  Transmission Date: 20150721
  Serious: Yes (Death, Life-Threatening)
  Sender: FDA-Public Use
  Company Number: FR-SA-2015SA014032

PATIENT
  Age: 84 Year
  Sex: Male
  Weight: 89 kg

DRUGS (6)
  1. GENTAMICIN. [Suspect]
     Active Substance: GENTAMICIN
     Indication: ENDOCARDITIS
     Route: 065
     Dates: start: 20120327, end: 20120413
  2. RAMIPRIL. [Suspect]
     Active Substance: RAMIPRIL
     Indication: CARDIOMYOPATHY
     Route: 065
  3. FLUINDIONE [Concomitant]
     Active Substance: FLUINDIONE
  4. CLOXACILLIN [Concomitant]
     Active Substance: CLOXACILLIN
     Dates: start: 20120327, end: 20120515
  5. FUROSEMIDE. [Suspect]
     Active Substance: FUROSEMIDE
     Indication: HYPERTENSION
     Route: 065
  6. DOLIPRANE [Concomitant]
     Active Substance: ACETAMINOPHEN

REACTIONS (1)
  - Acute kidney injury [Fatal]

NARRATIVE: CASE EVENT DATE: 20120416
